FAERS Safety Report 7110149-0 (Version None)
Quarter: 2010Q4

REPORT INFORMATION
  Report Type: 
  Country: None (occurrence: None)
  Receive Date: 20101118
  Receipt Date: 20101110
  Transmission Date: 20110411
  Serious: Yes (Hospitalization, Other)
  Sender: FDA-Public Use
  Company Number: CZ-NOVOPROD-318311

PATIENT
  Age: 34 Year
  Sex: Male
  Weight: 105 kg

DRUGS (4)
  1. VICTOZA [Suspect]
     Indication: TYPE 2 DIABETES MELLITUS
     Dosage: 0.6-1.2 MG, QD
     Dates: start: 20101019
  2. VICTOZA [Suspect]
     Dosage: 1.2 MG, QD
     Dates: end: 20101103
  3. METFORMINUM [Concomitant]
     Indication: TYPE 2 DIABETES MELLITUS
     Dosage: 500 MG, TID
     Dates: start: 20100501
  4. METFORMINUM [Concomitant]
     Dosage: 500-850-850
     Dates: start: 20100601, end: 20101110

REACTIONS (6)
  - ABDOMINAL PAIN [None]
  - DIARRHOEA [None]
  - DUODENITIS [None]
  - EOSINOPHILIA [None]
  - HEPATOSPLENOMEGALY [None]
  - PANCREATIC DISORDER [None]
